FAERS Safety Report 4751416-5 (Version None)
Quarter: 2005Q3

REPORT INFORMATION
  Report Type: 
  Country: None (occurrence: None)
  Receive Date: 20050824
  Receipt Date: 20050308
  Transmission Date: 20060218
  Serious: Yes (Other)
  Sender: FDA-Public Use
  Company Number: 200510851FR

PATIENT
  Age: 53 Year
  Sex: Female
  Weight: 53 kg

DRUGS (4)
  1. ARAVA [Suspect]
     Indication: RHEUMATOID ARTHRITIS
     Route: 048
     Dates: start: 20040901, end: 20050308
  2. CORTANCYL [Concomitant]
     Route: 048
  3. LEVOTHYROX [Concomitant]
     Route: 048
  4. NSAID'S [Concomitant]

REACTIONS (1)
  - THYROID GLAND CANCER [None]
